FAERS Safety Report 20440509 (Version 1)
Quarter: 2022Q1

REPORT INFORMATION
  Report Type: Spontaneous
  Country: AU (occurrence: AU)
  Receive Date: 20220207
  Receipt Date: 20220207
  Transmission Date: 20220423
  Serious: Yes (Hospitalization, Other)
  Sender: FDA-Public Use
  Company Number: AU-ANIPHARMA-2022-AU-000030

PATIENT
  Age: 54 Year
  Sex: Male

DRUGS (2)
  1. IBUPROFEN [Suspect]
     Active Substance: IBUPROFEN
     Indication: Arthralgia
     Dosage: 400 MG 3 TIMES DAILY
  2. ACETAMINOPHEN [Suspect]
     Active Substance: ACETAMINOPHEN
     Indication: Arthralgia
     Dosage: 1 GRAM 4 TIMES DAILY

REACTIONS (4)
  - Pyroglutamic acidosis [Recovered/Resolved]
  - Metabolic acidosis [Recovered/Resolved]
  - Renal tubular acidosis [Recovered/Resolved]
  - Nephropathy toxic [Recovered/Resolved]
